FAERS Safety Report 15912527 (Version 2)
Quarter: 2020Q1

REPORT INFORMATION
  Report Type: Spontaneous
  Country: US (occurrence: US)
  Receive Date: 20190204
  Receipt Date: 20200206
  Transmission Date: 20200409
  Serious: Yes (Death)
  Sender: FDA-Public Use
  Company Number: US-ABBVIE-18K-163-2437566-00

PATIENT
  Age: 95 Year
  Sex: Male
  Weight: 54.48 kg

DRUGS (2)
  1. HUMIRA [Suspect]
     Active Substance: ADALIMUMAB
     Indication: PSORIASIS
     Route: 058
     Dates: start: 2018
  2. GALANTAMINE. [Concomitant]
     Active Substance: GALANTAMINE
     Indication: DEMENTIA

REACTIONS (6)
  - Device issue [Unknown]
  - Pneumonia [Fatal]
  - Nasopharyngitis [Fatal]
  - Skin atrophy [Unknown]
  - Incorrect dose administered [Unknown]
  - Sepsis [Fatal]

NARRATIVE: CASE EVENT DATE: 20191102
